FAERS Safety Report 16389935 (Version 1)
Quarter: 2019Q2

REPORT INFORMATION
  Report Type: Other
  Country: DE (occurrence: DE)
  Receive Date: 20190604
  Receipt Date: 20190604
  Transmission Date: 20190711
  Serious: Yes (Hospitalization)
  Sender: FDA-Public Use
  Company Number: DE-RARE DISEASE THERAPEUTICS, INC.-2067772

PATIENT
  Sex: Male

DRUGS (15)
  1. PURIXAN [Suspect]
     Active Substance: MERCAPTOPURINE
     Indication: ACUTE LYMPHOCYTIC LEUKAEMIA
     Route: 064
  2. MESNA. [Suspect]
     Active Substance: MESNA
     Route: 064
  3. PURIXAN [Suspect]
     Active Substance: MERCAPTOPURINE
     Indication: B-CELL TYPE ACUTE LEUKAEMIA
     Route: 064
  4. GRANULOCYTE COLONY STIMULATING FACTOR [Suspect]
     Active Substance: GRANULOCYTE COLONY-STIMULATING FACTOR NOS
     Route: 064
  5. CYTARABINE. [Suspect]
     Active Substance: CYTARABINE
     Route: 064
  6. VINCRISTINE [Suspect]
     Active Substance: VINCRISTINE
     Route: 064
  7. METHOTREXATE. [Suspect]
     Active Substance: METHOTREXATE
     Route: 064
  8. PEGASPARGASE [Suspect]
     Active Substance: PEGASPARGASE
     Route: 064
  9. LEUCOVORIN CALCIUM. [Suspect]
     Active Substance: LEUCOVORIN CALCIUM
     Route: 064
  10. RITUXIMAB. [Suspect]
     Active Substance: RITUXIMAB
     Route: 064
  11. CYCLOPHOSPHAMIDE. [Suspect]
     Active Substance: CYCLOPHOSPHAMIDE
     Route: 064
  12. DAUNORUBICIN [Suspect]
     Active Substance: DAUNORUBICIN
     Route: 064
  13. VINDESINE [Suspect]
     Active Substance: VINDESINE
     Route: 064
  14. ETOPOSIDE. [Suspect]
     Active Substance: ETOPOSIDE
     Route: 064
  15. DEXAMETHASONE. [Suspect]
     Active Substance: DEXAMETHASONE
     Route: 064

REACTIONS (3)
  - Low birth weight baby [Recovered/Resolved]
  - Premature baby [Recovered/Resolved]
  - Foetal exposure during pregnancy [None]
